FAERS Safety Report 16268367 (Version 6)
Quarter: 2020Q2

REPORT INFORMATION
  Report Type: Spontaneous
  Country: JP (occurrence: JP)
  Receive Date: 20190503
  Receipt Date: 20200403
  Transmission Date: 20200713
  Serious: Yes (Hospitalization, Other)
  Sender: FDA-Public Use
  Company Number: JP-AMGEN-JPNSP2019068173

PATIENT
  Age: 66 Year
  Sex: Female
  Weight: 77 kg

DRUGS (5)
  1. EPOGIN [Concomitant]
     Active Substance: ERYTHROPOIETIN
     Dosage: 4500 INTERNATIONAL UNIT, QWK
     Route: 065
  2. FESIN [SACCHARATED IRON OXIDE] [Concomitant]
     Active Substance: IRON SUCROSE
     Dosage: 40 MILLIGRAM, QWK
     Route: 065
  3. FULSTAN [Concomitant]
     Dosage: 0.3 MICROGRAM, 4 TIMES/WK (0.3 UG, Q42H)
     Route: 048
     Dates: start: 20180521, end: 20191205
  4. PARSABIV [Suspect]
     Active Substance: ETELCALCETIDE HYDROCHLORIDE
     Indication: HYPERPARATHYROIDISM SECONDARY
     Dosage: 5 MILLIGRAM, 3 TIMES/WK
     Route: 010
     Dates: start: 20180907
  5. P-TOL [SUCROFERRIC OXYHYDROXIDE] [Concomitant]
     Indication: HYPERPARATHYROIDISM SECONDARY
     Dosage: 500 MILLIGRAM, QD
     Route: 048
     Dates: start: 20180606

REACTIONS (3)
  - Shunt stenosis [Recovered/Resolved]
  - Colon cancer [Recovered/Resolved]
  - Interstitial lung disease [Not Recovered/Not Resolved]

NARRATIVE: CASE EVENT DATE: 20181212
